FAERS Safety Report 19552703 (Version 1)
Quarter: 2021Q3

REPORT INFORMATION
  Report Type: Spontaneous
  Country: US (occurrence: US)
  Receive Date: 20210714
  Receipt Date: 20210714
  Transmission Date: 20211014
  Serious: No
  Sender: FDA-Public Use
  Company Number: NVSC2021US155578

PATIENT
  Sex: Female
  Weight: 92.97 kg

DRUGS (1)
  1. ZOMETA [Suspect]
     Active Substance: ZOLEDRONIC ACID
     Indication: METASTASES TO BONE
     Dosage: 4 MG, Q4W
     Route: 042
     Dates: start: 20210129, end: 20210324

REACTIONS (7)
  - Diarrhoea [Recovering/Resolving]
  - Headache [Unknown]
  - Muscle spasms [Unknown]
  - Gait disturbance [Unknown]
  - Abdominal pain [Recovering/Resolving]
  - Dyspnoea [Recovering/Resolving]
  - Illness [Unknown]
